FAERS Safety Report 5797053-5 (Version None)
Quarter: 2008Q2

REPORT INFORMATION
  Report Type: 
  Country: None (occurrence: None)
  Receive Date: 20080618
  Receipt Date: 20070907
  Transmission Date: 20081010
  Serious: Yes (Hospitalization)
  Sender: FDA-Public Use
  Company Number: 200716380US

PATIENT
  Age: 59 Year
  Sex: Male

DRUGS (14)
  1. LANTUS [Suspect]
     Indication: TYPE 2 DIABETES MELLITUS
     Dosage: 6 U
     Dates: start: 20070903, end: 20070905
  2. CELLCEPT [Concomitant]
  3. PREDNISONE TAB [Concomitant]
  4. OMEPRAZOLE (PRILOSEC /00661201/) [Concomitant]
  5. POTASSIUM CHLORIDE (K-DUR) [Concomitant]
  6. CLOPIDOGREL (PLAVIX /01220701/) [Concomitant]
  7. LASIX [Concomitant]
  8. ASPIRIN [Concomitant]
  9. COREG [Concomitant]
  10. ORVASTATIN CALCIUM (LIPITOR) [Concomitant]
  11. XAZOSIN (CARDURA /00639301/) [Concomitant]
  12. RYTHROPOIETIN (PROCRIT /00909301/) [Concomitant]
  13. MULTI-VITAMIN [Concomitant]
  14. GLIPIZIDE [Concomitant]

REACTIONS (1)
  - HYPOGLYCAEMIA [None]
